FAERS Safety Report 18529871 (Version 3)
Quarter: 2020Q4

REPORT INFORMATION
  Report Type: Spontaneous
  Country: US (occurrence: US)
  Receive Date: 20201120
  Receipt Date: 20201214
  Transmission Date: 20210114
  Serious: Yes (Other)
  Sender: FDA-Public Use
  Company Number: US-NOVOPROD-754400

PATIENT
  Age: 72 Year
  Sex: Male

DRUGS (3)
  1. LEVEMIR [Suspect]
     Active Substance: INSULIN DETEMIR
     Indication: DIABETES MELLITUS
     Dosage: UNK
     Route: 058
  2. NOVOLOG [Suspect]
     Active Substance: INSULIN ASPART
     Indication: DIABETES MELLITUS
     Dosage: 33 IU, QD (10, 13, 10 UNITS)
     Route: 058
     Dates: start: 2016
  3. NOVOLIN N [Suspect]
     Active Substance: INSULIN HUMAN
     Indication: DIABETES MELLITUS
     Dosage: UNK
     Route: 058

REACTIONS (7)
  - Peripheral swelling [Recovered/Resolved]
  - Intentional dose omission [Unknown]
  - Therapy non-responder [Unknown]
  - Hypertension [Unknown]
  - Glycosylated haemoglobin increased [Recovering/Resolving]
  - Localised infection [Unknown]
  - Blood glucose increased [Unknown]

NARRATIVE: CASE EVENT DATE: 2016
